FAERS Safety Report 24578003 (Version 1)
Quarter: 2024Q4

REPORT INFORMATION
  Report Type: Spontaneous
  Country: US (occurrence: US)
  Receive Date: 20241104
  Receipt Date: 20241104
  Transmission Date: 20250115
  Serious: Yes (Other)
  Sender: APELLIS PHARMACEUTICALS
  Company Number: US-APELLIS PHARMACEUTICALS-APL-2023-002390

PATIENT

DRUGS (4)
  1. SYFOVRE [Suspect]
     Active Substance: PEGCETACOPLAN
     Indication: Dry age-related macular degeneration
     Dosage: UNK
     Route: 031
     Dates: start: 20230427, end: 20230427
  2. SYNTHROID [Concomitant]
     Active Substance: LEVOTHYROXINE SODIUM
     Indication: Product used for unknown indication
     Dosage: 75 MICROGRAM, QD
     Route: 048
  3. BETADINE [Concomitant]
     Active Substance: POVIDONE-IODINE
     Indication: Product used for unknown indication
  4. PRESERVISION AREDS 2 + MULTIVITAMIN [Concomitant]
     Indication: Product used for unknown indication

REACTIONS (20)
  - Retinal occlusive vasculitis [Recovered/Resolved]
  - Retinal oedema [Recovered/Resolved]
  - Vitreous haemorrhage [Recovered/Resolved]
  - Macular oedema [Recovered/Resolved]
  - Chorioretinal disorder [Recovered/Resolved]
  - Retinal haemorrhage [Recovered/Resolved]
  - Anterior segment neovascularisation [Unknown]
  - Anterior chamber cell [Recovered/Resolved]
  - Vitreal cells [Recovered/Resolved]
  - Intraocular pressure increased [Recovered/Resolved]
  - Headache [Recovered/Resolved]
  - Eyelid oedema [Recovered/Resolved]
  - Conjunctival hyperaemia [Recovered/Resolved]
  - Sciatica [Recovered/Resolved]
  - Vision blurred [Not Recovered/Not Resolved]
  - Conjunctivitis [Recovered/Resolved]
  - Visual impairment [Not Recovered/Not Resolved]
  - Hyphaema [Recovered/Resolved]
  - Ocular discomfort [Unknown]
  - Type IV hypersensitivity reaction [Unknown]

NARRATIVE: CASE EVENT DATE: 20230506
